FAERS Safety Report 6031548-4 (Version None)
Quarter: 2008Q4

REPORT INFORMATION
  Report Type: 
  Country: None (occurrence: None)
  Receive Date: 20081222
  Receipt Date: 20081022
  Transmission Date: 20090506
  Serious: No
  Sender: FDA-Public Use
  Company Number: US-WYE-H06529808

PATIENT
  Age: 60 Year
  Sex: Female
  Weight: 51.76 kg

DRUGS (9)
  1. PRISTIQ [Suspect]
     Indication: CRYING
     Dosage: 50 MG 1X PER 1 DAY, ORAL
     Route: 048
     Dates: start: 20081002, end: 20081019
  2. PRISTIQ [Suspect]
     Indication: NIGHT SWEATS
     Dosage: 50 MG 1X PER 1 DAY, ORAL
     Route: 048
     Dates: start: 20081002, end: 20081019
  3. VITAMINS WITH MINERALS (VITAMINS WITH MINERALS) [Concomitant]
  4. PREMARIN [Concomitant]
  5. PROMETRIUM [Concomitant]
  6. BIOTIN [Concomitant]
  7. CALCIUM (CALCIUM) [Concomitant]
  8. FLAXSEED (FLAXSEED) [Concomitant]
  9. COSAMIN DS (GLUCOSAMINE HYDROCHLORIDE/CHONDROITIN SULFATE) [Concomitant]

REACTIONS (9)
  - CONSTIPATION [None]
  - CRYING [None]
  - DIARRHOEA [None]
  - FLAT AFFECT [None]
  - NAUSEA [None]
  - OEDEMA PERIPHERAL [None]
  - PAIN IN EXTREMITY [None]
  - RECTAL HAEMORRHAGE [None]
  - TREMOR [None]
